FAERS Safety Report 16601702 (Version 2)
Quarter: 2019Q3

REPORT INFORMATION
  Report Type: Report from Study
  Country: DE (occurrence: DE)
  Receive Date: 20190719
  Receipt Date: 20190730
  Transmission Date: 20191004
  Serious: Yes (Other)
  Sender: FDA-Public Use
  Company Number: DE-SHIRE-DE201922547

PATIENT

DRUGS (3)
  1. TEDUGLUTIDE [Suspect]
     Active Substance: TEDUGLUTIDE
     Indication: SHORT-BOWEL SYNDROME
     Dosage: 0.08 MILLILITER, 1X/DAY:QD
     Route: 058
     Dates: start: 20190624
  2. TEDUGLUTIDE [Suspect]
     Active Substance: TEDUGLUTIDE
     Dosage: HALF DOSE (UNKNOWN)
     Route: 065
  3. TEDUGLUTIDE [Suspect]
     Active Substance: TEDUGLUTIDE
     Dosage: UNK, 1X/DAY:QD (0.30 ML, 1.25 MG AMPOULES)
     Route: 058
     Dates: start: 20190624

REACTIONS (6)
  - Renal failure [Unknown]
  - Ear discomfort [Recovering/Resolving]
  - Stoma complication [Recovering/Resolving]
  - Infection [Recovered/Resolved]
  - Cachexia [Unknown]
  - Tremor [Not Recovered/Not Resolved]

NARRATIVE: CASE EVENT DATE: 20190630
